FAERS Safety Report 26045732 (Version 1)
Quarter: 2025Q4

REPORT INFORMATION
  Report Type: Report from Study
  Country: US (occurrence: US)
  Receive Date: 20251114
  Receipt Date: 20251114
  Transmission Date: 20260117
  Serious: Yes (Disabling, Other)
  Sender: CSL BEHRING
  Company Number: US-BEH-2025225058

PATIENT
  Age: 35 Year
  Sex: Female

DRUGS (2)
  1. BERINERT [Suspect]
     Active Substance: HUMAN C1-ESTERASE INHIBITOR
     Indication: Hereditary angioedema
     Dosage: 500.0 KIT AS ORDERED
     Route: 065
     Dates: start: 20251105
  2. BERINERT [Suspect]
     Active Substance: HUMAN C1-ESTERASE INHIBITOR
     Indication: Hereditary angioedema
     Dosage: 500.0 KIT AS ORDERED
     Route: 065
     Dates: start: 20251105

REACTIONS (1)
  - Disability [Unknown]

NARRATIVE: CASE EVENT DATE: 20251105
